FAERS Safety Report 8607160 (Version 3)
Quarter: 2013Q4

REPORT INFORMATION
  Report Type: Spontaneous
  Country: US (occurrence: US)
  Receive Date: 20120611
  Receipt Date: 20131204
  Transmission Date: 20140711
  Serious: No
  Sender: FDA-Public Use
  Company Number: US-ASTRAZENECA-2012SE34922

PATIENT
  Age: 16941 Day
  Sex: Female
  Weight: 76.2 kg

DRUGS (13)
  1. NEXIUM [Suspect]
     Indication: GASTROOESOPHAGEAL REFLUX DISEASE
     Route: 048
  2. NEXIUM [Suspect]
     Indication: GASTROOESOPHAGEAL REFLUX DISEASE
     Dosage: WHEN NEEDED
     Route: 048
     Dates: start: 2008, end: 2011
  3. NEXIUM [Suspect]
     Indication: GASTROOESOPHAGEAL REFLUX DISEASE
     Route: 048
     Dates: start: 20080903
  4. PREVACID [Concomitant]
  5. PREVACID [Concomitant]
     Route: 048
     Dates: start: 20070210
  6. RANITIDINE/ZANTAC [Concomitant]
  7. RANITIDINE/ZANTAC [Concomitant]
     Route: 048
     Dates: start: 20110516
  8. PEPCID [Concomitant]
  9. MULTIVITAMINS [Concomitant]
  10. ECHINACEA [Concomitant]
  11. PREDNISONE [Concomitant]
     Route: 048
     Dates: start: 20110927
  12. SINGULAIR [Concomitant]
     Route: 048
     Dates: start: 20111015
  13. ALENDRONATE [Concomitant]
     Route: 048
     Dates: start: 20090408

REACTIONS (5)
  - Osteoporosis [Unknown]
  - Arthritis [Unknown]
  - Foot fracture [Unknown]
  - Calcium deficiency [Unknown]
  - Vitamin D deficiency [Unknown]
